FAERS Safety Report 4595242-9 (Version None)
Quarter: 2005Q1

REPORT INFORMATION
  Report Type: 
  Country: None (occurrence: None)
  Receive Date: 20050225
  Receipt Date: 20050215
  Transmission Date: 20050727
  Serious: Yes (Hospitalization)
  Sender: FDA-Public Use
  Company Number: TPA2005A00182

PATIENT
  Age: 81 Year
  Sex: Female
  Weight: 81.6475 kg

DRUGS (7)
  1. ACTOS [Suspect]
     Indication: DIABETES MELLITUS NON-INSULIN-DEPENDENT
     Dosage: 30 MG, 1 IN 1 D, PER ORAL
     Route: 048
  2. ZOLOFT [Concomitant]
  3. LIPITOR [Concomitant]
  4. PROTONIX [Concomitant]
  5. ATENOLOL [Concomitant]
  6. INSULIN [Concomitant]
  7. ASPIRIN [Concomitant]

REACTIONS (1)
  - MYOCARDIAL INFARCTION [None]
